FAERS Safety Report 9032399 (Version 1)
Quarter: 2013Q1

REPORT INFORMATION
  Report Type: Spontaneous
  Country: US (occurrence: US)
  Receive Date: 20130122
  Receipt Date: 20130122
  Transmission Date: 20140127
  Serious: No
  Sender: FDA-Public Use
  Company Number: US-PFIZER INC-2013022749

PATIENT
  Sex: Female

DRUGS (2)
  1. DIFLUCAN [Suspect]
     Indication: ORAL CANDIDIASIS
     Dosage: 150 MG, 1X/DAY
     Dates: start: 20130109
  2. PREDNISONE [Suspect]
     Indication: CARDIAC DISORDER
     Dosage: UNK
     Dates: start: 201211

REACTIONS (1)
  - Dysgeusia [Not Recovered/Not Resolved]
